FAERS Safety Report 21571806 (Version 1)
Quarter: 2022Q4

REPORT INFORMATION
  Report Type: Spontaneous
  Country: US (occurrence: US)
  Receive Date: 20221109
  Receipt Date: 20221109
  Transmission Date: 20230113
  Serious: Yes (Hospitalization)
  Sender: FDA-Public Use
  Company Number: US-MYLANLABS-2022M1123278

PATIENT
  Age: 57 Year
  Sex: Female

DRUGS (4)
  1. TIZANIDINE [Suspect]
     Active Substance: TIZANIDINE
     Indication: Back pain
     Dosage: SHE WAS TAKING EXTRA DOSES OF TIZANIDINE.
     Route: 048
  2. HYDROXYZINE [Concomitant]
     Active Substance: HYDROXYZINE HYDROCHLORIDE
     Indication: Product used for unknown indication
     Dosage: UNK
     Route: 065
  3. DIAZEPAM [Concomitant]
     Active Substance: DIAZEPAM
     Indication: Product used for unknown indication
     Dosage: UNK
     Route: 065
  4. CYCLOBENZAPRINE [Concomitant]
     Active Substance: CYCLOBENZAPRINE
     Indication: Product used for unknown indication
     Dosage: UNK
     Route: 065

REACTIONS (6)
  - Dysarthria [Recovering/Resolving]
  - Bradycardia [Recovering/Resolving]
  - Somnolence [Recovering/Resolving]
  - Toxic encephalopathy [Recovering/Resolving]
  - Intentional product use issue [Recovering/Resolving]
  - Overdose [Recovering/Resolving]
